FAERS Safety Report 10703718 (Version 3)
Quarter: 2015Q1

REPORT INFORMATION
  Report Type: Spontaneous
  Country: BR (occurrence: BR)
  Receive Date: 20150112
  Receipt Date: 20150129
  Transmission Date: 20150721
  Serious: Yes (Other)
  Sender: FDA-Public Use
  Company Number: BR-SA-2014SA032438

PATIENT
  Age: 42 Year
  Sex: Female
  Weight: 63 kg

DRUGS (1)
  1. CLEXANE [Suspect]
     Active Substance: ENOXAPARIN SODIUM
     Indication: PROPHYLAXIS
     Dosage: THERAPY STOP DATE: 2014
     Route: 058
     Dates: start: 20140131

REACTIONS (2)
  - Exposure during pregnancy [Unknown]
  - Caesarean section [Unknown]

NARRATIVE: CASE EVENT DATE: 20140925
